FAERS Safety Report 8111485-1 (Version None)
Quarter: 2012Q1

REPORT INFORMATION
  Report Type: 
  Country: None (occurrence: None)
  Receive Date: 20120203
  Receipt Date: 20120126
  Transmission Date: 20120608
  Serious: Yes (Hospitalization)
  Sender: FDA-Public Use
  Company Number: JP-CELGENEUS-087-50794-11080319

PATIENT
  Sex: Female
  Weight: 38 kg

DRUGS (19)
  1. VIDAZA [Suspect]
     Indication: MYELODYSPLASTIC SYNDROME
     Dosage: 75 MILLIGRAM/SQ. METER
     Route: 058
     Dates: start: 20110713, end: 20110720
  2. SULFAMETHOXAZOLE [Suspect]
     Dosage: 1 DF
     Route: 048
     Dates: start: 20110808, end: 20110824
  3. ASPARA POTASSIUM [Concomitant]
     Route: 065
     Dates: start: 20110726, end: 20110730
  4. EBRANTIL [Concomitant]
     Route: 065
     Dates: start: 20110725, end: 20110805
  5. CLOBETASOL PROPIONATE [Concomitant]
     Route: 065
     Dates: start: 20110730
  6. VALTREX [Concomitant]
     Route: 065
     Dates: start: 20110803, end: 20110807
  7. GENINAX [Concomitant]
     Route: 065
     Dates: start: 20110819, end: 20110829
  8. ZOSYN [Concomitant]
     Route: 065
     Dates: start: 20110804, end: 20110805
  9. GRANISETRON [Concomitant]
     Route: 065
     Dates: start: 20110713, end: 20110713
  10. EBRANTIL [Concomitant]
     Route: 065
     Dates: start: 20110822, end: 20110828
  11. LEVOFLOXACIN [Concomitant]
     Route: 065
     Dates: start: 20110727, end: 20110805
  12. UBRETID [Concomitant]
     Route: 065
     Dates: start: 20110822, end: 20110828
  13. VFEND [Concomitant]
     Route: 065
     Dates: start: 20110805
  14. MEROPENEM [Concomitant]
     Route: 065
     Dates: start: 20110805, end: 20110818
  15. SULFAMETHOXAZOLE [Suspect]
     Dosage: 1 DF
     Route: 041
     Dates: start: 20110808, end: 20110824
  16. RABEPRAZOLE SODIUM [Concomitant]
     Route: 065
     Dates: end: 20110801
  17. RAMELTEON [Concomitant]
     Route: 065
     Dates: start: 20110714, end: 20110720
  18. LANSOPRAZOLE [Concomitant]
     Route: 065
     Dates: start: 20110802
  19. POSTERISAN [Concomitant]
     Route: 065
     Dates: start: 20110725, end: 20110730

REACTIONS (8)
  - URINARY RETENTION [None]
  - PNEUMONIA [None]
  - HYPONATRAEMIA [None]
  - ENTERITIS INFECTIOUS [None]
  - DIARRHOEA [None]
  - HYPOKALAEMIA [None]
  - INJECTION SITE ERYTHEMA [None]
  - INJECTION SITE INDURATION [None]
